FAERS Safety Report 16150001 (Version 1)
Quarter: 2019Q2

REPORT INFORMATION
  Report Type: Spontaneous
  Country: US (occurrence: US)
  Receive Date: 20190402
  Receipt Date: 20190402
  Transmission Date: 20190711
  Serious: Yes (Hospitalization)
  Sender: FDA-Public Use
  Company Number: None

PATIENT
  Age: 58 Year
  Sex: Male
  Weight: 92.7 kg

DRUGS (1)
  1. LOSARTAN. [Suspect]
     Active Substance: LOSARTAN
     Indication: HYPERTENSION
     Dosage: ?          QUANTITY:90 TABLET(S);?
     Route: 048
     Dates: start: 20190310, end: 20190317

REACTIONS (5)
  - Recalled product administered [None]
  - Fatigue [None]
  - Impaired work ability [None]
  - Blood pressure increased [None]
  - Myocardial infarction [None]

NARRATIVE: CASE EVENT DATE: 20190311
